FAERS Safety Report 5501020-6 (Version None)
Quarter: 2007Q4

REPORT INFORMATION
  Report Type: 
  Country: None (occurrence: None)
  Receive Date: 20071029
  Receipt Date: 20071022
  Transmission Date: 20080405
  Serious: Yes (Hospitalization)
  Sender: FDA-Public Use
  Company Number: PHBS2007JP15270

PATIENT
  Age: 37 Year
  Sex: Female
  Weight: 48 kg

DRUGS (3)
  1. REGITINE [Suspect]
     Indication: PHAEOCHROMOCYTOMA
     Dosage: 18 MG
     Route: 042
     Dates: start: 20070829
  2. TRANDATE [Concomitant]
     Dosage: 300 MG/D
     Route: 048
     Dates: start: 20070820
  3. INSULIN [Concomitant]
     Dates: start: 20070820

REACTIONS (3)
  - CAESAREAN SECTION [None]
  - DRUG EXPOSURE DURING PREGNANCY [None]
  - PHAEOCHROMOCYTOMA EXCISION [None]
